FAERS Safety Report 18866021 (Version 3)
Quarter: 2022Q1

REPORT INFORMATION
  Report Type: Spontaneous
  Country: US (occurrence: US)
  Receive Date: 20210208
  Receipt Date: 20220308
  Transmission Date: 20220423
  Serious: No
  Sender: FDA-Public Use
  Company Number: US-PFIZER INC-2021115810

PATIENT
  Age: 70 Year
  Sex: Female

DRUGS (1)
  1. XELJANZ XR [Suspect]
     Active Substance: TOFACITINIB CITRATE
     Indication: Rheumatoid arthritis
     Dosage: 11 MG, 1X/DAY
     Route: 048
     Dates: end: 202105

REACTIONS (10)
  - Burning sensation [Recovering/Resolving]
  - Musculoskeletal discomfort [Not Recovered/Not Resolved]
  - Mobility decreased [Unknown]
  - Pain [Recovering/Resolving]
  - Diarrhoea [Unknown]
  - Discouragement [Unknown]
  - Depressed mood [Unknown]
  - Memory impairment [Unknown]
  - Back pain [Unknown]
  - Condition aggravated [Unknown]
